FAERS Safety Report 26044564 (Version 2)
Quarter: 2025Q4

REPORT INFORMATION
  Report Type: Spontaneous
  Country: EU (occurrence: EU)
  Receive Date: 20251114
  Receipt Date: 20251124
  Transmission Date: 20260117
  Serious: Yes (Hospitalization, Other)
  Sender: ROCHE
  Company Number: None

PATIENT
  Age: 51 Year
  Sex: Female

DRUGS (13)
  1. RITUXIMAB [Suspect]
     Active Substance: RITUXIMAB
     Indication: Diffuse large B-cell lymphoma
     Dosage: BENDAMUSTINE-RITUXIMAB (6X)
     Route: 065
     Dates: start: 202101, end: 202108
  2. RITUXIMAB [Suspect]
     Active Substance: RITUXIMAB
     Indication: Extranodal marginal zone B-cell lymphoma (MALT type) stage II
     Dosage: R-CHOP 6X
     Route: 065
     Dates: start: 202208
  3. RITUXIMAB [Suspect]
     Active Substance: RITUXIMAB
     Indication: Lymphoma
     Dosage: R-MONOTHERAPY (AFTER 6 CYCLES)
     Route: 065
     Dates: end: 202312
  4. RITUXIMAB [Suspect]
     Active Substance: RITUXIMAB
     Indication: Lymphadenopathy
     Dosage: UNK JANUARY-AUGUST 2021, 6X
     Route: 065
     Dates: start: 202101, end: 202312
  5. RITUXIMAB [Suspect]
     Active Substance: RITUXIMAB
     Indication: Extranodal marginal zone B-cell lymphoma (MALT type)
  6. BENDAMUSTINE [Suspect]
     Active Substance: BENDAMUSTINE
     Indication: Lymphoma
     Dosage: BENDAMUSTINE-RITUXIMAB (6X)
     Route: 065
     Dates: start: 202101, end: 202108
  7. BENDAMUSTINE [Suspect]
     Active Substance: BENDAMUSTINE
     Indication: Lymphadenopathy
  8. BENDAMUSTINE [Suspect]
     Active Substance: BENDAMUSTINE
     Indication: Extranodal marginal zone B-cell lymphoma (MALT type)
  9. CYCLOPHOSPHAMIDE\DOXORUBICIN\PREDNISONE\VINCRISTINE [Suspect]
     Active Substance: CYCLOPHOSPHAMIDE\DOXORUBICIN\PREDNISONE\VINCRISTINE
     Indication: Diffuse large B-cell lymphoma
     Dosage: R-CHOP 6X
     Route: 065
     Dates: start: 202208
  10. CYCLOPHOSPHAMIDE [Concomitant]
     Active Substance: CYCLOPHOSPHAMIDE
     Indication: Extranodal marginal zone B-cell lymphoma (MALT type)
     Dates: start: 202208
  11. EPIRUBICIN [Concomitant]
     Active Substance: EPIRUBICIN
     Indication: Extranodal marginal zone B-cell lymphoma (MALT type)
     Dates: start: 202208
  12. PREDNISONE [Concomitant]
     Active Substance: PREDNISONE
     Indication: Extranodal marginal zone B-cell lymphoma (MALT type)
     Dates: start: 202208
  13. VINCRISTINE [Concomitant]
     Active Substance: VINCRISTINE
     Indication: Extranodal marginal zone B-cell lymphoma (MALT type)
     Dates: start: 202208

REACTIONS (11)
  - COVID-19 [Unknown]
  - Illness [Unknown]
  - Cough [Unknown]
  - Therapy partial responder [Unknown]
  - Off label use [Unknown]
  - Intentional product use issue [Unknown]
  - COVID-19 [Unknown]
  - Diffuse large B-cell lymphoma recurrent [Unknown]
  - Extranodal marginal zone B-cell lymphoma (MALT type) recurrent [Unknown]
  - Erythema nodosum [Unknown]
  - Cough [Unknown]

NARRATIVE: CASE EVENT DATE: 20220801
